FAERS Safety Report 15784981 (Version 2)
Quarter: 2019Q1

REPORT INFORMATION
  Report Type: Spontaneous
  Country: ES (occurrence: ES)
  Receive Date: 20190103
  Receipt Date: 20190222
  Transmission Date: 20190417
  Serious: Yes (Hospitalization)
  Sender: FDA-Public Use
  Company Number: ES-TEVA-2018-ES-993916

PATIENT
  Age: 71 Year
  Sex: Male

DRUGS (1)
  1. LEVOFLOXACINO TEVA 500 MG [Suspect]
     Active Substance: LEVOFLOXACIN
     Indication: RESPIRATORY FAILURE
     Route: 048
     Dates: start: 2018, end: 2019

REACTIONS (5)
  - Tendon injury [Recovered/Resolved]
  - Muscle rupture [Recovered/Resolved]
  - Muscle contracture [Recovered/Resolved]
  - Vomiting [Recovered/Resolved]
  - Dizziness [Recovered/Resolved]

NARRATIVE: CASE EVENT DATE: 2018
